FAERS Safety Report 6398743-6 (Version None)
Quarter: 2009Q4

REPORT INFORMATION
  Report Type: 
  Country: None (occurrence: None)
  Receive Date: 20091013
  Receipt Date: 20090930
  Transmission Date: 20100525
  Serious: Yes (Other)
  Sender: FDA-Public Use
  Company Number: PHHY2009CH42032

PATIENT
  Sex: Male

DRUGS (4)
  1. LEPONEX [Suspect]
     Indication: SCHIZOPHRENIA
     Dosage: UNK
  2. SOLIAN [Suspect]
  3. AKINETON [Suspect]
  4. LAMICTAL [Suspect]

REACTIONS (3)
  - MACULAR OEDEMA [None]
  - RETINOPATHY [None]
  - VISUAL ACUITY REDUCED [None]
